FAERS Safety Report 8146370-2 (Version None)
Quarter: 2012Q1

REPORT INFORMATION
  Report Type: 
  Country: None (occurrence: None)
  Receive Date: 20120217
  Receipt Date: 20110902
  Transmission Date: 20120608
  Serious: No
  Sender: FDA-Public Use
  Company Number: US-ABBOTT-11P-163-0851078-00

PATIENT
  Sex: Male
  Weight: 104.42 kg

DRUGS (2)
  1. SIMCOR [Suspect]
     Indication: PRODUCT USED FOR UNKNOWN INDICATION
     Dates: start: 20070901
  2. AVACOR [Concomitant]
     Indication: PRODUCT USED FOR UNKNOWN INDICATION

REACTIONS (3)
  - DIARRHOEA [None]
  - HOT FLUSH [None]
  - DRUG DOSE OMISSION [None]
